FAERS Safety Report 19063980 (Version 4)
Quarter: 2022Q1

REPORT INFORMATION
  Report Type: Spontaneous
  Country: RU (occurrence: RU)
  Receive Date: 20210326
  Receipt Date: 20220131
  Transmission Date: 20220423
  Serious: Yes (Other)
  Sender: FDA-Public Use
  Company Number: RU-009507513-2011RUS009405

PATIENT
  Age: 28 Year
  Sex: Female
  Weight: 62 kg

DRUGS (3)
  1. ETONOGESTREL [Suspect]
     Active Substance: ETONOGESTREL
     Indication: Contraception
     Dosage: 1 IMPLANT (1 DOSAGE FORM), RIGHT FOREARM, INNERSIDE
     Route: 059
     Dates: start: 20200911
  2. ETONOGESTREL [Suspect]
     Active Substance: ETONOGESTREL
     Indication: Heavy menstrual bleeding
  3. ATARAX [Concomitant]
     Active Substance: HYDROXYZINE HYDROCHLORIDE
     Indication: Anxiety disorder
     Dosage: UNK

REACTIONS (22)
  - Conversion disorder [Recovered/Resolved]
  - Tearfulness [Recovered/Resolved]
  - Cystitis [Recovered/Resolved]
  - Nervousness [Recovered/Resolved]
  - Bacterial vaginosis [Recovered/Resolved]
  - Sensory disturbance [Recovered/Resolved]
  - Vulvovaginal dryness [Recovered/Resolved]
  - Leukocyturia [Recovered/Resolved]
  - Candida test positive [Recovered/Resolved]
  - Bacteriuria [Recovered/Resolved]
  - Dysbiosis [Recovered/Resolved]
  - Menstruation delayed [Recovered/Resolved]
  - Vaginal haemorrhage [Not Recovered/Not Resolved]
  - Vaginal haemorrhage [Recovered/Resolved]
  - Menstruation irregular [Recovered/Resolved]
  - Implant site pruritus [Recovered/Resolved]
  - Dysuria [Recovered/Resolved]
  - Vaginal infection [Recovered/Resolved]
  - Heavy menstrual bleeding [Recovered/Resolved]
  - Amenorrhoea [Recovered/Resolved]
  - Product use issue [Unknown]
  - Product use in unapproved indication [Unknown]

NARRATIVE: CASE EVENT DATE: 20200101
